FAERS Safety Report 23530194 (Version 2)
Quarter: 2024Q1

REPORT INFORMATION
  Report Type: Spontaneous
  Country: AU (occurrence: AU)
  Receive Date: 20240216
  Receipt Date: 20240220
  Transmission Date: 20240409
  Serious: Yes (Death, Life-Threatening, Hospitalization, Other)
  Sender: FDA-Public Use
  Company Number: AU-MLMSERVICE-20240205-4816245-1

PATIENT
  Age: 48 Year
  Sex: Male

DRUGS (9)
  1. CORTIZONE 10 EASY RELIEF [Suspect]
     Active Substance: HYDROCORTISONE
     Indication: COVID-19
     Dosage: 50-100 MG 6H
     Route: 042
     Dates: start: 2022
  2. TOCILIZUMAB [Suspect]
     Active Substance: TOCILIZUMAB
     Indication: COVID-19
     Dates: start: 202201, end: 202201
  3. VANCOMYCIN [Concomitant]
     Active Substance: VANCOMYCIN
     Indication: Anti-infective therapy
     Dates: start: 2022
  4. OXYGEN [Concomitant]
     Active Substance: OXYGEN
     Indication: Oxygen therapy
     Dosage: HIGH-FLOW NASAL PRONG
     Dates: start: 2022
  5. MEROPENEM [Concomitant]
     Active Substance: MEROPENEM
     Indication: Anti-infective therapy
     Dates: start: 2022
  6. CEFEPIME [Concomitant]
     Active Substance: CEFEPIME HYDROCHLORIDE
     Indication: Anti-infective therapy
     Dates: start: 2022
  7. PIPERACILLIN AND TAZOBACTAM [Concomitant]
     Active Substance: PIPERACILLIN SODIUM\TAZOBACTAM SODIUM
     Indication: Anti-infective therapy
     Dates: start: 2022
  8. REMDESIVIR [Concomitant]
     Active Substance: REMDESIVIR
     Indication: COVID-19
     Dosage: 200 MG (LOADING DOSE)
  9. REMDESIVIR [Concomitant]
     Active Substance: REMDESIVIR
     Dosage: 200 MG (LOADING DOSE)

REACTIONS (11)
  - Aspergillus infection [Fatal]
  - Pulmonary haemorrhage [Fatal]
  - Klebsiella infection [Fatal]
  - Stenotrophomonas infection [Fatal]
  - Pneumonia cytomegaloviral [Fatal]
  - Bronchopulmonary aspergillosis [Fatal]
  - Pulmonary necrosis [Fatal]
  - Bronchopleural fistula [Fatal]
  - Enterococcal infection [Fatal]
  - Purulent discharge [Fatal]
  - Hypoxia [Fatal]

NARRATIVE: CASE EVENT DATE: 20220101
